FAERS Safety Report 4852032-7 (Version None)
Quarter: 2005Q4

REPORT INFORMATION
  Report Type: 
  Country: None (occurrence: None)
  Receive Date: 20051209
  Receipt Date: 20051201
  Transmission Date: 20060501
  Serious: Yes (Life-Threatening, Hospitalization)
  Sender: FDA-Public Use
  Company Number: 2005US-01274

PATIENT
  Sex: Male

DRUGS (12)
  1. MIDAZOLAM [Suspect]
     Indication: ANAESTHESIA
  2. FENTANYL [Suspect]
  3. ROCURONIUM BROMIDE() [Suspect]
     Indication: ANAESTHESIA
  4. AMONIGLUTHETHIMIDE [Concomitant]
  5. FLUOXYMESTERONE [Concomitant]
  6. STANOZOLOL [Concomitant]
  7. ANASTROZOLE [Concomitant]
  8. TESTOSTERONE PROPIONATE [Concomitant]
  9. SOMATROPIN [Concomitant]
  10. CYANOCOBALAMINE [Concomitant]
  11. LIOTHYRONINE [Concomitant]
  12. INSULIN [Concomitant]

REACTIONS (10)
  - ANAESTHETIC COMPLICATION [None]
  - ANOXIC ENCEPHALOPATHY [None]
  - BLOOD TRIGLYCERIDES INCREASED [None]
  - CARDIAC ARREST [None]
  - EJECTION FRACTION DECREASED [None]
  - RENAL FAILURE [None]
  - RHABDOMYOLYSIS [None]
  - VENTRICULAR HYPERTROPHY [None]
  - VENTRICULAR HYPOKINESIA [None]
  - VENTRICULAR TACHYCARDIA [None]
